FAERS Safety Report 18560087 (Version 2)
Quarter: 2021Q1

REPORT INFORMATION
  Report Type: Spontaneous
  Country: US (occurrence: US)
  Receive Date: 20201130
  Receipt Date: 20210312
  Transmission Date: 20210419
  Serious: Yes (Other)
  Sender: FDA-Public Use
  Company Number: US-CATALYST PHARMACEUTICALS, INC-2020CAT00566

PATIENT
  Age: 60 Year
  Sex: Female
  Weight: 97.51 kg

DRUGS (30)
  1. FIRDAPSE [Suspect]
     Active Substance: AMIFAMPRIDINE PHOSPHATE
     Indication: MYASTHENIC SYNDROME
     Dosage: 10 MG, 4X/DAY
     Route: 048
     Dates: start: 20201015, end: 2020
  2. FIRDAPSE [Suspect]
     Active Substance: AMIFAMPRIDINE PHOSPHATE
     Dosage: 5 MG (BETWEEN 10 MG DOSES) TITRATING
     Route: 048
     Dates: start: 2020, end: 2020
  3. IMODIUM [Concomitant]
     Active Substance: LOPERAMIDE HYDROCHLORIDE
     Dosage: 3 TABLETS
  4. FAMOTIDINE. [Concomitant]
     Active Substance: FAMOTIDINE
     Dosage: 20 MG, 1X/DAY
  5. ZYRTEC [Concomitant]
     Active Substance: CETIRIZINE HYDROCHLORIDE
     Dosage: 10 MG, 1X/DAY
  6. SUDAFED [Concomitant]
     Active Substance: PSEUDOEPHEDRINE HYDROCHLORIDE
     Dosage: 2 TABLETS, UP TO 2X/DAY AS NEEDED
  7. TYLENOL [Concomitant]
     Active Substance: ACETAMINOPHEN
  8. IRON TABLETS 65 [Concomitant]
     Dosage: 1 TABLETS, 3X/WEEK
  9. TIZANIDINE. [Concomitant]
     Active Substance: TIZANIDINE
     Dosage: 1 TABLETS, 1X/DAY AT NIGHT
  10. MAGNESIUM [Concomitant]
     Active Substance: MAGNESIUM
     Dosage: 400 MG, 1X/DAY
  11. GLUCOSAMINE/CHONDROITIN [Concomitant]
     Dosage: 1500 MG, 1X/DAY
  12. VICKS NYQUIL [Concomitant]
     Active Substance: ACETAMINOPHEN\DEXTROMETHORPHAN HYDROBROMIDE\DOXYLAMINE SUCCINATE
     Dosage: 2 CAPSULES
  13. UNSPECIFIED ALLERGY PILL [Concomitant]
     Dosage: UNK, 1X/DAY
  14. FIRDAPSE [Suspect]
     Active Substance: AMIFAMPRIDINE PHOSPHATE
     Dosage: 15 MG, ONCE
     Route: 048
     Dates: start: 2020, end: 2020
  15. VITAMIN D3 [Concomitant]
     Active Substance: CHOLECALCIFEROL
     Dosage: 5000 U, 1X/DAY
  16. IMODIUM [Concomitant]
     Active Substance: LOPERAMIDE HYDROCHLORIDE
     Dosage: 2 TABLETS, AS NEEDED
  17. MELOXICAM. [Concomitant]
     Active Substance: MELOXICAM
     Dosage: 15 MG, UP TO 1X/DAY
  18. FIRDAPSE [Suspect]
     Active Substance: AMIFAMPRIDINE PHOSPHATE
     Dosage: 10 MG (WITH 5 MG DOSES BETWEEN) TITRATING
     Route: 048
     Dates: start: 2020, end: 2020
  19. CENTRUM SILVER [Concomitant]
     Active Substance: MINERALS\VITAMINS
     Dosage: 1 DOSAGE UNITS, 1X/DAY
  20. CALCIUM WITH VITAMIN D3 [Concomitant]
     Active Substance: CALCIUM CARBONATE\CHOLECALCIFEROL
     Dosage: UNK, 1X/DAY
  21. OMEGA 3,6,9 [Concomitant]
     Dosage: UNK, 1X/DAY
  22. VALSARTAN. [Concomitant]
     Active Substance: VALSARTAN
     Dosage: 80 MG, 1X/DAY
  23. PROAIR HFA [Concomitant]
     Active Substance: ALBUTEROL SULFATE
  24. FIRDAPSE [Suspect]
     Active Substance: AMIFAMPRIDINE PHOSPHATE
     Dosage: 10 MG (WITH 5 MG DOSES IN BETWEEN; TOTAL DAILY DOSE OF 60 MG)
     Route: 048
     Dates: start: 20201022
  25. FIRDAPSE [Suspect]
     Active Substance: AMIFAMPRIDINE PHOSPHATE
     Dosage: 5 MG (BETWEEN 10 MG DOSES; TOTAL DAILY DOSE OF 60 MG)
     Route: 048
     Dates: start: 20201022
  26. TIZANIDINE. [Concomitant]
     Active Substance: TIZANIDINE
     Dosage: 0.5 TABLETS, AS NEEDED
  27. METFORMIN ER [Concomitant]
     Active Substance: METFORMIN HYDROCHLORIDE
     Dosage: 1000 MG, 2X/DAY
  28. DULOXETINE. [Concomitant]
     Active Substance: DULOXETINE
     Dosage: 60 MG, 1X/DAY
  29. B15 [Concomitant]
     Dosage: 500 ?G
     Route: 060
  30. ASPIRIN. [Concomitant]
     Active Substance: ASPIRIN

REACTIONS (7)
  - Arthralgia [Not Recovered/Not Resolved]
  - Nerve compression [Not Recovered/Not Resolved]
  - Therapeutic product effect incomplete [Not Recovered/Not Resolved]
  - Papillary renal cell carcinoma [Not Recovered/Not Resolved]
  - Intervertebral disc degeneration [Not Recovered/Not Resolved]
  - Neck pain [Not Recovered/Not Resolved]
  - Renal impairment [Not Recovered/Not Resolved]

NARRATIVE: CASE EVENT DATE: 2020
